FAERS Safety Report 4872772-3 (Version None)
Quarter: 2006Q1

REPORT INFORMATION
  Report Type: 
  Country: None (occurrence: None)
  Receive Date: 20060105
  Receipt Date: 20051209
  Transmission Date: 20060701
  Serious: Yes (Death, Other)
  Sender: FDA-Public Use
  Company Number: CA-BRISTOL-MYERS SQUIBB COMPANY-13218318

PATIENT
  Age: 82 Year
  Sex: Male

DRUGS (14)
  1. TEQUIN [Suspect]
     Route: 048
  2. ALLOPURINOL [Concomitant]
  3. ASPIRIN [Concomitant]
  4. ATROVENT [Concomitant]
  5. COLACE [Concomitant]
  6. DIABETA [Concomitant]
  7. FLOVENT [Concomitant]
  8. INHIBACE [Concomitant]
  9. LANOXIN [Concomitant]
  10. LASIX [Concomitant]
  11. NORVASC [Concomitant]
  12. PREVACID [Concomitant]
  13. SENOKOT [Concomitant]
  14. VENTOLIN [Concomitant]

REACTIONS (2)
  - DEATH [None]
  - HYPOGLYCAEMIA [None]
